FAERS Safety Report 10736203 (Version 2)
Quarter: 2015Q2

REPORT INFORMATION
  Report Type: Spontaneous
  Country: US (occurrence: US)
  Receive Date: 20150126
  Receipt Date: 20150511
  Transmission Date: 20150821
  Serious: No
  Sender: FDA-Public Use
  Company Number: US-009507513-1501USA009637

PATIENT
  Sex: Female
  Weight: 47.76 kg

DRUGS (1)
  1. NEXPLANON [Suspect]
     Active Substance: ETONOGESTREL
     Dosage: INSERTED ^A FEW MONTHS AGO^
     Route: 059

REACTIONS (3)
  - Device breakage [Recovered/Resolved]
  - Complication of device insertion [Unknown]
  - No adverse event [Unknown]
